FAERS Safety Report 15108033 (Version 1)
Quarter: 2018Q3

REPORT INFORMATION
  Report Type: Spontaneous
  Country: US (occurrence: US)
  Receive Date: 20180704
  Receipt Date: 20180704
  Transmission Date: 20181010
  Serious: No
  Sender: FDA-Public Use
  Company Number: US-BEH-2018092343

PATIENT
  Sex: Male
  Weight: 4.99 kg

DRUGS (8)
  1. EPINEPHRINE. [Concomitant]
     Active Substance: EPINEPHRINE
  2. LIDOCAINE. [Concomitant]
     Active Substance: LIDOCAINE
  3. INFANT FORMULAS [Concomitant]
  4. NEULASTA [Concomitant]
     Active Substance: PEGFILGRASTIM
  5. HIZENTRA [Suspect]
     Active Substance: HUMAN IMMUNOGLOBULIN G
     Indication: HYPOGAMMAGLOBULINAEMIA
     Dosage: 1 G, QW
     Route: 058
     Dates: start: 20180615
  6. HIZENTRA [Suspect]
     Active Substance: HUMAN IMMUNOGLOBULIN G
     Indication: NEUTROPENIA
     Dosage: UNK
     Route: 058
  7. ACETAMINOPHEN. [Concomitant]
     Active Substance: ACETAMINOPHEN
  8. DIPHENHYDRAMINE. [Concomitant]
     Active Substance: DIPHENHYDRAMINE

REACTIONS (3)
  - Platelet count decreased [Unknown]
  - Infusion site swelling [Unknown]
  - Infusion site bruising [Unknown]

NARRATIVE: CASE EVENT DATE: 2018
